FAERS Safety Report 7362638-1 (Version None)
Quarter: 2011Q1

REPORT INFORMATION
  Report Type: 
  Country: None (occurrence: None)
  Receive Date: 20110320
  Receipt Date: 20110309
  Transmission Date: 20110831
  Serious: Yes (Other)
  Sender: FDA-Public Use
  Company Number: US-SANOFI-AVENTIS-2011SA015237

PATIENT
  Age: 56 Year
  Sex: Female
  Weight: 92 kg

DRUGS (13)
  1. ASPIRIN [Concomitant]
  2. PLAQUENIL [Concomitant]
  3. PLAVIX [Suspect]
     Indication: TRANSIENT ISCHAEMIC ATTACK
     Route: 065
     Dates: start: 20101201
  4. OLOPATADINE HYDROCHLORIDE [Concomitant]
  5. CALTRATE [Concomitant]
  6. SPIRIVA [Concomitant]
  7. VITAMIN B COMPLEX CAP [Concomitant]
  8. NEXIUM [Concomitant]
  9. AZOR [Concomitant]
     Dosage: 10/40MG
  10. CLARINEX /USA/ [Concomitant]
  11. MAGNESIUM [Concomitant]
  12. CELEBREX [Concomitant]
  13. SINGULAIR [Concomitant]

REACTIONS (1)
  - CHEST PAIN [None]
